FAERS Safety Report 8218046-4 (Version None)
Quarter: 2012Q1

REPORT INFORMATION
  Report Type: 
  Country: None (occurrence: None)
  Receive Date: 20120315
  Receipt Date: 20120314
  Transmission Date: 20120608
  Serious: Yes (Death, Hospitalization)
  Sender: FDA-Public Use
  Company Number: LTI2012A00062

PATIENT
  Age: 72 Year
  Sex: Male

DRUGS (5)
  1. REVLIMID [Suspect]
     Indication: 5Q MINUS SYNDROME
     Dosage: ORAL
     Route: 048
     Dates: start: 20070801, end: 20110501
  2. ACTOS [Suspect]
     Indication: TYPE 2 DIABETES MELLITUS
     Dosage: SEE IMAGE: ORAL
     Route: 048
     Dates: start: 20110210, end: 20110313
  3. ACTOS [Suspect]
     Indication: TYPE 2 DIABETES MELLITUS
     Dosage: SEE IMAGE: ORAL
     Route: 048
     Dates: start: 20070524, end: 20071220
  4. ACTOS [Suspect]
     Indication: TYPE 2 DIABETES MELLITUS
     Dosage: SEE IMAGE: ORAL
     Route: 048
     Dates: start: 20070101, end: 20100101
  5. ACTOS [Suspect]
     Indication: TYPE 2 DIABETES MELLITUS
     Dosage: SEE IMAGE: ORAL
     Route: 048
     Dates: start: 20071220, end: 20110210

REACTIONS (1)
  - METASTATIC CARCINOMA OF THE BLADDER [None]
